FAERS Safety Report 13362828 (Version 2)
Quarter: 2017Q2

REPORT INFORMATION
  Report Type: Report from Study
  Country: US (occurrence: US)
  Receive Date: 20170323
  Receipt Date: 20170504
  Transmission Date: 20170830
  Serious: Yes (Death, Other)
  Sender: FDA-Public Use
  Company Number: US-PFIZER INC-2017125362

PATIENT
  Age: 95 Year
  Sex: Female

DRUGS (1)
  1. IBRANCE [Suspect]
     Active Substance: PALBOCICLIB
     Indication: BREAST CANCER
     Dosage: 75 MG, 1X/DAY
     Route: 048
     Dates: start: 201601, end: 201610

REACTIONS (1)
  - Death [Fatal]

NARRATIVE: CASE EVENT DATE: 20161018
